FAERS Safety Report 22589421 (Version 1)
Quarter: 2023Q2

REPORT INFORMATION
  Report Type: Spontaneous
  Country: JP (occurrence: None)
  Receive Date: 20230612
  Receipt Date: 20230612
  Transmission Date: 20230722
  Serious: Yes (Death)
  Sender: FDA-Public Use
  Company Number: 2023A131139

PATIENT
  Age: 85 Year
  Sex: Male

DRUGS (3)
  1. LOKELMA [Suspect]
     Active Substance: SODIUM ZIRCONIUM CYCLOSILICATE
     Route: 048
  2. UNSPECIFIED INGREDIENT [Concomitant]
     Active Substance: UNSPECIFIED INGREDIENT
     Indication: Diabetes mellitus
     Dosage: DOSE UNKNOWN
     Route: 048
  3. CALTAN [Concomitant]
     Active Substance: CALCIUM CARBONATE
     Dosage: DOSE UNKNOWN
     Route: 048

REACTIONS (1)
  - Death [Fatal]
